FAERS Safety Report 22881346 (Version 4)
Quarter: 2023Q4

REPORT INFORMATION
  Report Type: Spontaneous
  Country: US (occurrence: US)
  Receive Date: 20230830
  Receipt Date: 20231006
  Transmission Date: 20240109
  Serious: No
  Sender: FDA-Public Use
  Company Number: US-SA-SAC20230829000356

PATIENT
  Age: 15 Year
  Sex: Male

DRUGS (2)
  1. DUPIXENT [Suspect]
     Active Substance: DUPILUMAB
     Dosage: 300 MG, QOW
     Route: 058
     Dates: start: 202303, end: 202309
  2. MINOCYCLINE [Suspect]
     Active Substance: MINOCYCLINE HYDROCHLORIDE
     Dosage: UNK
     Route: 065

REACTIONS (9)
  - Vomiting [Recovered/Resolved]
  - Rash pruritic [Unknown]
  - Rash papular [Unknown]
  - Exfoliative rash [Unknown]
  - Rash erythematous [Unknown]
  - Eczema [Not Recovered/Not Resolved]
  - Skin lesion [Unknown]
  - Swelling of eyelid [Unknown]
  - Rash [Unknown]

NARRATIVE: CASE EVENT DATE: 20230101
